FAERS Safety Report 6892837-4 (Version None)
Quarter: 2010Q3

REPORT INFORMATION
  Report Type: 
  Country: None (occurrence: None)
  Receive Date: 20100731
  Receipt Date: 20081006
  Transmission Date: 20110219
  Serious: No
  Sender: FDA-Public Use
  Company Number: US-PFIZER INC-2008084237

PATIENT
  Sex: Female

DRUGS (4)
  1. GABAPENTIN [Suspect]
     Indication: NEURALGIA
     Dates: start: 20080902
  2. DARVOCET [Concomitant]
  3. SIMVASTATIN [Concomitant]
  4. ACTONEL [Concomitant]

REACTIONS (1)
  - DYSPHONIA [None]
